FAERS Safety Report 7415775-7 (Version None)
Quarter: 2011Q2

REPORT INFORMATION
  Report Type: 
  Country: None (occurrence: None)
  Receive Date: 20110414
  Receipt Date: 20110331
  Transmission Date: 20111010
  Serious: Yes (Death)
  Sender: FDA-Public Use
  Company Number: IT-CELGENEUS-083-21880-11031531

PATIENT
  Sex: Male
  Weight: 84 kg

DRUGS (4)
  1. REVLIMID [Suspect]
     Dosage: 10 MILLIGRAM
     Route: 048
     Dates: start: 20100423, end: 20100513
  2. ROCEPHIN [Concomitant]
     Indication: INFECTION
     Route: 065
     Dates: start: 20100607, end: 20100615
  3. CIPROXIN [Concomitant]
     Indication: INFECTION
     Dosage: 400 MILLIGRAM
     Route: 065
     Dates: start: 20100615, end: 20100615
  4. CYTARABINE [Suspect]
     Dosage: 40 MILLIGRAM
     Route: 058
     Dates: start: 20100423, end: 20100507

REACTIONS (2)
  - BONE MARROW FAILURE [None]
  - PNEUMONIA [None]
